FAERS Safety Report 18547811 (Version 4)
Quarter: 2023Q2

REPORT INFORMATION
  Report Type: Spontaneous
  Country: US (occurrence: US)
  Receive Date: 20201125
  Receipt Date: 20230428
  Transmission Date: 20230721
  Serious: Yes (Other)
  Sender: FDA-Public Use
  Company Number: US-PFIZER INC-2020095772

PATIENT
  Age: 66 Year
  Sex: Female
  Weight: 74.39 kg

DRUGS (1)
  1. XELJANZ [Suspect]
     Active Substance: TOFACITINIB CITRATE
     Indication: Crohn^s disease
     Dosage: 5 MG, 2X/DAY

REACTIONS (4)
  - Spinal fracture [Unknown]
  - Off label use [Unknown]
  - Dyspepsia [Not Recovered/Not Resolved]
  - Seasonal allergy [Unknown]
